FAERS Safety Report 8997123 (Version 1)
Quarter: 2013Q1

REPORT INFORMATION
  Report Type: Spontaneous
  Country: US (occurrence: None)
  Receive Date: 20130102
  Receipt Date: 20130102
  Transmission Date: 20140127
  Serious: No
  Sender: FDA-Public Use
  Company Number: None

PATIENT
  Age: 70 Year
  Sex: Female

DRUGS (1)
  1. ENBREL [Suspect]
     Dosage: 25MG BIW SQ
     Route: 058
     Dates: start: 20120822

REACTIONS (2)
  - Injection site rash [None]
  - Hypersensitivity [None]
